FAERS Safety Report 24338965 (Version 2)
Quarter: 2024Q4

REPORT INFORMATION
  Report Type: Spontaneous
  Country: JP (occurrence: JP)
  Receive Date: 20240919
  Receipt Date: 20241022
  Transmission Date: 20250114
  Serious: No
  Sender: BOTANIX PHARMACEUTICALS
  Company Number: JP-BOTANIX PHARMACEUTICALS-2024BOT00002

PATIENT
  Age: 18 Year
  Sex: Female

DRUGS (1)
  1. SOFPIRONIUM BROMIDE [Suspect]
     Active Substance: SOFPIRONIUM BROMIDE
     Indication: Hyperhidrosis
     Dosage: UNK, 1X/DAY (PER 24 HOURS)
     Route: 061
     Dates: start: 20240709, end: 20240711

REACTIONS (3)
  - Hot flush [Recovered/Resolved]
  - Mydriasis [Recovered/Resolved]
  - Application site irritation [Recovered/Resolved]

NARRATIVE: CASE EVENT DATE: 20240709
